FAERS Safety Report 10521186 (Version 2)
Quarter: 2014Q4

REPORT INFORMATION
  Report Type: Spontaneous
  Country: ES (occurrence: ES)
  Receive Date: 20141016
  Receipt Date: 20141105
  Transmission Date: 20150528
  Serious: Yes (Hospitalization, Other)
  Sender: FDA-Public Use
  Company Number: ES-BRISTOL-MYERS SQUIBB COMPANY-21492384

PATIENT
  Age: 54 Year
  Sex: Female
  Weight: 52 kg

DRUGS (8)
  1. LEFLUNOMIDE. [Suspect]
     Active Substance: LEFLUNOMIDE
     Dosage: RESTARTED?DOSE REDUCED:10MG
     Route: 048
     Dates: start: 2003
  2. IBUPROFEN. [Concomitant]
     Active Substance: IBUPROFEN
  3. FLUTICASONE PROPIONATE. [Concomitant]
     Active Substance: FLUTICASONE PROPIONATE
  4. ABATACEPT [Suspect]
     Active Substance: ABATACEPT
     Indication: RHEUMATOID ARTHRITIS
     Dosage: INCREASED; 750 MG
     Route: 042
     Dates: start: 201203, end: 20131107
  5. ORENCIA [Suspect]
     Active Substance: ABATACEPT
     Indication: RHEUMATOID ARTHRITIS
     Route: 058
     Dates: start: 20140516
  6. LORMETAZEPAM [Concomitant]
     Active Substance: LORMETAZEPAM
  7. PARACETAMOL [Concomitant]
     Active Substance: ACETAMINOPHEN
  8. ATORVASTATIN [Concomitant]
     Active Substance: ATORVASTATIN

REACTIONS (3)
  - Postoperative wound infection [Recovering/Resolving]
  - Wound dehiscence [Unknown]
  - Tendon rupture [Unknown]

NARRATIVE: CASE EVENT DATE: 20131201
